FAERS Safety Report 20391275 (Version 1)
Quarter: 2022Q1

REPORT INFORMATION
  Report Type: Spontaneous
  Country: US (occurrence: US)
  Receive Date: 20220128
  Receipt Date: 20220128
  Transmission Date: 20220423
  Serious: Yes (Other)
  Sender: FDA-Public Use
  Company Number: US-JNJFOC-20220137893

PATIENT
  Age: 38 Year
  Sex: Female
  Weight: 42.222 kg

DRUGS (2)
  1. SPRAVATO [Suspect]
     Active Substance: ESKETAMINE
     Indication: Depression
     Dosage: SEP/2021 OR OCT/2021
     Dates: start: 2021
  2. SPRAVATO [Suspect]
     Active Substance: ESKETAMINE
     Dates: start: 20220119

REACTIONS (5)
  - Mental impairment [Recovered/Resolved]
  - Feeling abnormal [Recovered/Resolved]
  - Dizziness [Recovered/Resolved]
  - Sedation [Recovered/Resolved]
  - Dissociation [Recovered/Resolved]
